FAERS Safety Report 11376735 (Version 1)
Quarter: 2015Q3

REPORT INFORMATION
  Report Type: Spontaneous
  Country: US (occurrence: US)
  Receive Date: 20150813
  Receipt Date: 20150813
  Transmission Date: 20151125
  Serious: Yes (Hospitalization)
  Sender: FDA-Public Use
  Company Number: US-TAKEDA-2015TUS010606

PATIENT
  Sex: Female

DRUGS (3)
  1. COLCRYS [Suspect]
     Active Substance: COLCHICINE
     Dosage: 0.6 MG, BID
     Route: 048
     Dates: start: 20150414
  2. PREDNISONE. [Concomitant]
     Active Substance: PREDNISONE
     Indication: PERICARDITIS
     Dosage: 7.5 MG, UNK
     Route: 048
     Dates: start: 20150414
  3. COLCRYS [Suspect]
     Active Substance: COLCHICINE
     Indication: PERICARDITIS
     Dosage: 0.6 MG, UNK
     Route: 048
     Dates: start: 2010, end: 20150414

REACTIONS (4)
  - Off label use [Not Recovered/Not Resolved]
  - Pericardial effusion [Recovered/Resolved]
  - Nephrolithiasis [Unknown]
  - Renal disorder [Unknown]

NARRATIVE: CASE EVENT DATE: 2010
